FAERS Safety Report 9698153 (Version 1)
Quarter: 2013Q4

REPORT INFORMATION
  Report Type: Spontaneous
  Country: IT (occurrence: None)
  Receive Date: 20131118
  Receipt Date: 20131118
  Transmission Date: 20140711
  Serious: Yes (Other)
  Sender: FDA-Public Use
  Company Number: IPC201311-000450

PATIENT
  Age: 42 Year
  Sex: Male

DRUGS (4)
  1. METFORMIN HYDROCHLORIDE [Suspect]
     Indication: TYPE 2 DIABETES MELLITUS
  2. LIRAGLUTIDE [Suspect]
     Indication: TYPE 2 DIABETES MELLITUS
  3. HYDROCHLOROTHIAZIDE [Concomitant]
  4. ENALAPRIL [Concomitant]

REACTIONS (6)
  - Polyarthritis [None]
  - Oedema [None]
  - Weight decreased [None]
  - Nausea [None]
  - Low density lipoprotein increased [None]
  - Gamma-glutamyltransferase increased [None]
